FAERS Safety Report 24316298 (Version 1)
Quarter: 2024Q3

REPORT INFORMATION
  Report Type: Report from Study
  Country: HU (occurrence: HU)
  Receive Date: 20240913
  Receipt Date: 20240913
  Transmission Date: 20241016
  Serious: Yes (Life-Threatening, Hospitalization, Other)
  Sender: MYLAN
  Company Number: HU-PFIZER INC-2018088751

PATIENT
  Age: 31 Year
  Sex: Male

DRUGS (17)
  1. TOBRAMYCIN [Suspect]
     Active Substance: TOBRAMYCIN\TOBRAMYCIN SULFATE
     Indication: Pneumonia
     Dosage: UNK
     Route: 065
  2. TOBRAMYCIN [Suspect]
     Active Substance: TOBRAMYCIN\TOBRAMYCIN SULFATE
     Indication: Endocarditis staphylococcal
  3. TOBRAMYCIN [Suspect]
     Active Substance: TOBRAMYCIN\TOBRAMYCIN SULFATE
     Indication: Pneumonia staphylococcal
  4. TOBRAMYCIN [Suspect]
     Active Substance: TOBRAMYCIN\TOBRAMYCIN SULFATE
     Indication: Staphylococcal sepsis
  5. VANCOMYCIN HYDROCHLORIDE [Suspect]
     Active Substance: VANCOMYCIN HYDROCHLORIDE
     Indication: Staphylococcal sepsis
     Dosage: QD (30-60 MG/KG/ DAY DIVIDED INTO 2-3 PARTS FOR 4-6 WEEKS)
     Route: 042
  6. VANCOMYCIN HYDROCHLORIDE [Suspect]
     Active Substance: VANCOMYCIN HYDROCHLORIDE
     Indication: Endocarditis staphylococcal
     Dosage: UNK
     Route: 042
  7. VANCOMYCIN HYDROCHLORIDE [Suspect]
     Active Substance: VANCOMYCIN HYDROCHLORIDE
     Indication: Pneumonia staphylococcal
     Dosage: UNK
     Route: 042
  8. RIFAMPIN [Suspect]
     Active Substance: RIFAMPIN
     Indication: Pneumonia staphylococcal
     Dosage: QD (300 TO 600 MG, DAILY)
     Route: 048
  9. RIFAMPIN [Suspect]
     Active Substance: RIFAMPIN
     Indication: Endocarditis staphylococcal
     Dosage: UNK
     Route: 065
  10. METRONIDAZOLE [Concomitant]
     Active Substance: METRONIDAZOLE
     Indication: Endocarditis staphylococcal
     Dosage: UNK
     Route: 065
  11. METRONIDAZOLE [Concomitant]
     Active Substance: METRONIDAZOLE
     Indication: Pneumonia
  12. METRONIDAZOLE [Concomitant]
     Active Substance: METRONIDAZOLE
     Indication: Staphylococcal sepsis
  13. METRONIDAZOLE [Concomitant]
     Active Substance: METRONIDAZOLE
     Indication: Pneumonia staphylococcal
  14. CEFTAZIDIME [Concomitant]
     Active Substance: CEFTAZIDIME
     Indication: Pneumonia
     Dosage: UNK
     Route: 065
  15. LINEZOLID [Concomitant]
     Active Substance: LINEZOLID
     Indication: Endocarditis staphylococcal
     Dosage: UNK
     Route: 065
  16. LINEZOLID [Concomitant]
     Active Substance: LINEZOLID
     Indication: Pneumonia staphylococcal
  17. LINEZOLID [Concomitant]
     Active Substance: LINEZOLID
     Indication: Staphylococcal sepsis

REACTIONS (1)
  - Drug ineffective [Recovered/Resolved]
